FAERS Safety Report 20165823 (Version 1)
Quarter: 2021Q4

REPORT INFORMATION
  Report Type: Spontaneous
  Country: US (occurrence: None)
  Receive Date: 20211208
  Receipt Date: 20211208
  Transmission Date: 20220303
  Serious: No
  Sender: FDA-Public Use
  Company Number: None

PATIENT
  Age: 88 Year
  Sex: Female
  Weight: 77.11 kg

DRUGS (15)
  1. PREDNISOLONE ACETATE PF [Suspect]
     Active Substance: PREDNISOLONE ACETATE
     Indication: Eye laser surgery
     Route: 031
     Dates: start: 20210127, end: 20210210
  2. MILK [Suspect]
     Active Substance: COW MILK
  3. AMLODIIPINE [Concomitant]
  4. ATENOLOL [Concomitant]
     Active Substance: ATENOLOL
  5. DAILY VITAMINS [Concomitant]
  6. MINERALS [Concomitant]
     Active Substance: MINERALS
  7. SOLUBLE FIBER [Concomitant]
     Active Substance: METHYLCELLULOSE (4000 CPS)
  8. VINEGAR [Concomitant]
     Active Substance: ACETIC ACID
  9. GARLIC [Concomitant]
     Active Substance: GARLIC
  10. VITAMIN B12 [Concomitant]
     Active Substance: CYANOCOBALAMIN
  11. VITAMIN C [Concomitant]
     Active Substance: ASCORBIC ACID
  12. GAS EX [Concomitant]
  13. LORATADINE [Concomitant]
     Active Substance: LORATADINE
  14. SENIOR ASPIRIN [Concomitant]
  15. BIOTIN [Concomitant]
     Active Substance: BIOTIN

REACTIONS (3)
  - Swelling face [None]
  - Skin wrinkling [None]
  - Skin discolouration [None]

NARRATIVE: CASE EVENT DATE: 20210127
